FAERS Safety Report 20794129 (Version 2)
Quarter: 2025Q1

REPORT INFORMATION
  Report Type: Spontaneous
  Country: ES (occurrence: ES)
  Receive Date: 20220506
  Receipt Date: 20250315
  Transmission Date: 20250408
  Serious: Yes (Hospitalization, Other)
  Sender: AUROBINDO
  Company Number: ES-PFIZER INC-202200513389

PATIENT
  Age: 40 Year
  Sex: Female

DRUGS (5)
  1. SERTRALINE [Suspect]
     Active Substance: SERTRALINE HYDROCHLORIDE
     Indication: Depression
     Dosage: 50 MILLIGRAM, ONCE A DAY
     Route: 065
  2. CLOMIPRAMINE [Suspect]
     Active Substance: CLOMIPRAMINE
     Indication: Depression
     Dosage: 50 MILLIGRAM, ONCE A DAY (25 MG, 2X/DAY)
     Route: 065
  3. CLOMIPRAMINE [Suspect]
     Active Substance: CLOMIPRAMINE
     Indication: Anxiety disorder
  4. ALPRAZOLAM [Concomitant]
     Active Substance: ALPRAZOLAM
     Indication: Depression
     Dosage: 1 MILLIGRAM, ONCE A DAY
     Route: 065
  5. ALPRAZOLAM [Concomitant]
     Active Substance: ALPRAZOLAM
     Indication: Anxiety disorder

REACTIONS (2)
  - Eosinophilic pneumonia [Recovered/Resolved]
  - Hepatic function abnormal [Recovered/Resolved]
